FAERS Safety Report 4949683-8 (Version None)
Quarter: 2006Q1

REPORT INFORMATION
  Report Type: 
  Country: None (occurrence: None)
  Receive Date: 20060316
  Receipt Date: 20060228
  Transmission Date: 20060701
  Serious: Yes (Hospitalization)
  Sender: FDA-Public Use
  Company Number: DSA_60709_2006

PATIENT
  Age: 7 Year
  Sex: Female

DRUGS (3)
  1. DIASTAT [Suspect]
     Indication: CONVULSION
     Dosage: 15 MG PRN RC
     Route: 054
  2. LAMICTAL [Concomitant]
  3. TRILEPTAL [Concomitant]

REACTIONS (5)
  - CONVULSION [None]
  - DEVICE FAILURE [None]
  - DISEASE RECURRENCE [None]
  - PHARMACEUTICAL PRODUCT COMPLAINT [None]
  - THERAPEUTIC PRODUCT INEFFECTIVE [None]
